FAERS Safety Report 7815579-7 (Version None)
Quarter: 2011Q4

REPORT INFORMATION
  Report Type: 
  Country: None (occurrence: None)
  Receive Date: 20111014
  Receipt Date: 20111010
  Transmission Date: 20120403
  Serious: Yes (Other)
  Sender: FDA-Public Use
  Company Number: BR-PFIZER INC-2009254343

PATIENT
  Age: 33 Year
  Sex: Female

DRUGS (2)
  1. GEODON [Suspect]
     Indication: SCHIZOPHRENIA
     Dosage: 80 MG, 2X/DAY
     Route: 048
  2. GEODON [Suspect]
     Dosage: UNK

REACTIONS (4)
  - HEADACHE [None]
  - INTENTIONAL DRUG MISUSE [None]
  - AGITATION [None]
  - DRUG INEFFECTIVE [None]
